FAERS Safety Report 9039712 (Version 1)
Quarter: 2013Q1

REPORT INFORMATION
  Report Type: Report from Study
  Country: US (occurrence: US)
  Receive Date: 20130130
  Receipt Date: 20130130
  Transmission Date: 20140127
  Serious: Yes (Other)
  Sender: FDA-Public Use
  Company Number: US-ABBOTT-12P-163-0944605-00

PATIENT
  Sex: Female
  Weight: 56.75 kg

DRUGS (4)
  1. HUMIRA 40 MG/0.8 ML PEN [Suspect]
     Indication: PSORIATIC ARTHROPATHY
     Route: 058
     Dates: start: 201106, end: 201111
  2. HUMIRA 40 MG/0.8 ML PEN [Suspect]
     Dates: start: 20120520
  3. LISINOPRIL [Concomitant]
     Indication: HYPERTENSION
  4. BONIVA [Concomitant]
     Indication: OSTEOPOROSIS

REACTIONS (3)
  - Abdominal pain lower [Recovered/Resolved]
  - Nephrolithiasis [Recovered/Resolved]
  - Urinary tract infection [Recovered/Resolved]
